FAERS Safety Report 7904471-5 (Version None)
Quarter: 2011Q4

REPORT INFORMATION
  Report Type: 
  Country: None (occurrence: None)
  Receive Date: 20111109
  Receipt Date: 20111104
  Transmission Date: 20120403
  Serious: Yes (Life-Threatening, Other)
  Sender: FDA-Public Use
  Company Number: US-BAYER-201017414NA

PATIENT
  Age: 31 Year
  Sex: Female
  Weight: 80.272 kg

DRUGS (10)
  1. YAZ [Suspect]
     Indication: MENSTRUAL DISORDER
  2. OMEPRAZOLE [Concomitant]
     Dosage: 20 MG, UNK
     Route: 048
  3. TRAZODONE HCL [Concomitant]
     Dosage: 100 MG, UNK
     Route: 048
  4. HYDROCODONE BITARTRATE [Concomitant]
     Route: 048
  5. PAXIL [Concomitant]
  6. PAROXETINE HCL [Concomitant]
     Dosage: 20 MG, UNK
     Route: 048
  7. YAZ [Suspect]
     Indication: INSULIN RESISTANCE
     Dosage: 1 DF, QD
     Route: 048
     Dates: start: 20070917, end: 20081101
  8. BUPROPION HYDROCHLORIDE [Concomitant]
     Dosage: 300 MG, UNK
     Route: 048
  9. XANAX [Concomitant]
  10. WELLBUTRIN [Concomitant]

REACTIONS (4)
  - CHOLECYSTITIS [None]
  - INJURY [None]
  - GALLBLADDER DISORDER [None]
  - ORGAN FAILURE [None]
